FAERS Safety Report 17927913 (Version 3)
Quarter: 2020Q3

REPORT INFORMATION
  Report Type: Report from Study
  Country: US (occurrence: US)
  Receive Date: 20200622
  Receipt Date: 20200915
  Transmission Date: 20201103
  Serious: No
  Sender: FDA-Public Use
  Company Number: NVSC2020US174923

PATIENT
  Age: 40 Year
  Sex: Male

DRUGS (1)
  1. ENTRESTO [Suspect]
     Active Substance: SACUBITRIL\VALSARTAN
     Indication: CARDIAC FAILURE
     Dosage: UNK UNK, BID
     Route: 048
     Dates: start: 201911, end: 20200912

REACTIONS (5)
  - Product dose omission issue [Recovering/Resolving]
  - Weight decreased [Unknown]
  - Peripheral swelling [Recovered/Resolved]
  - Feeling abnormal [Recovering/Resolving]
  - Cough [Unknown]

NARRATIVE: CASE EVENT DATE: 202001
